FAERS Safety Report 25110351 (Version 1)
Quarter: 2025Q1

REPORT INFORMATION
  Report Type: Spontaneous
  Country: ES (occurrence: ES)
  Receive Date: 20250324
  Receipt Date: 20250324
  Transmission Date: 20250409
  Serious: Yes (Other)
  Sender: ALEXION PHARMACEUTICALS
  Company Number: ES-AstraZeneca-CH-00831810AM

PATIENT
  Age: 60 Year

DRUGS (1)
  1. TAGRISSO [Suspect]
     Active Substance: OSIMERTINIB

REACTIONS (10)
  - Osteoporosis [Unknown]
  - Osteochondrosis [Unknown]
  - Bone disorder [Unknown]
  - Peripheral swelling [Unknown]
  - Fatigue [Unknown]
  - Pulmonary oedema [Unknown]
  - Pulmonary haematoma [Unknown]
  - Cerebrovascular accident [Unknown]
  - Pleurodesis [Unknown]
  - Convalescent [Unknown]
